FAERS Safety Report 8301653-8 (Version None)
Quarter: 2012Q2

REPORT INFORMATION
  Report Type: 
  Country: None (occurrence: None)
  Receive Date: 20120420
  Receipt Date: 20120419
  Transmission Date: 20120825
  Serious: Yes (Hospitalization)
  Sender: FDA-Public Use
  Company Number: US-ROCHE-1046518

PATIENT
  Sex: Female
  Weight: 47.2 kg

DRUGS (3)
  1. CARBOPLATIN [Suspect]
     Indication: OVARIAN EPITHELIAL CANCER
     Dosage: 6 AUC
     Route: 033
     Dates: start: 20100514
  2. AVASTIN [Suspect]
     Indication: OVARIAN EPITHELIAL CANCER
     Dosage: BEGINNING WITH CYCLE 2
     Route: 042
  3. PACLITAXEL [Suspect]
     Indication: OVARIAN EPITHELIAL CANCER
     Route: 042
     Dates: start: 20100514

REACTIONS (5)
  - ANAEMIA [None]
  - PLATELET COUNT DECREASED [None]
  - EPISTAXIS [None]
  - THROMBOTIC THROMBOCYTOPENIC PURPURA [None]
  - RECTAL HAEMORRHAGE [None]
